FAERS Safety Report 9478471 (Version 2)
Quarter: 2013Q3

REPORT INFORMATION
  Report Type: Spontaneous
  Country: US (occurrence: US)
  Receive Date: 20130827
  Receipt Date: 20130927
  Transmission Date: 20140515
  Serious: No
  Sender: FDA-Public Use
  Company Number: US-009507513-1308USA011964

PATIENT
  Sex: 0
  Weight: 54.42 kg

DRUGS (1)
  1. NUVARING [Suspect]
     Indication: CONTRACEPTION
     Dosage: UNKNOWN
     Dates: start: 201304, end: 2013

REACTIONS (6)
  - Infection [Recovering/Resolving]
  - Vulvovaginal burning sensation [Recovering/Resolving]
  - Pain [Recovering/Resolving]
  - Pyrexia [Recovering/Resolving]
  - Feeling abnormal [Recovering/Resolving]
  - Poor quality drug administered [Unknown]
